FAERS Safety Report 24217586 (Version 1)
Quarter: 2024Q3

REPORT INFORMATION
  Report Type: Report from Study
  Country: US (occurrence: US)
  Receive Date: 20240816
  Receipt Date: 20240816
  Transmission Date: 20241017
  Serious: Yes (Other)
  Sender: EISAI
  Company Number: US-Eisai-EC-2024-172118

PATIENT
  Sex: Female

DRUGS (1)
  1. FYCOMPA [Suspect]
     Active Substance: PERAMPANEL
     Indication: Focal dyscognitive seizures
     Dosage: DOSE AND FREQUENCY UNKNOWN
     Route: 048
     Dates: end: 2024

REACTIONS (2)
  - Suicidal ideation [Recovered/Resolved]
  - Personality change [Recovered/Resolved]
